FAERS Safety Report 10091951 (Version 3)
Quarter: 2015Q3

REPORT INFORMATION
  Report Type: Spontaneous
  Country: US (occurrence: US)
  Receive Date: 20140421
  Receipt Date: 20150814
  Transmission Date: 20151125
  Serious: No
  Sender: FDA-Public Use
  Company Number: US-GILEAD-2013-0070676

PATIENT
  Age: 52 Year
  Sex: Female

DRUGS (1)
  1. LETAIRIS [Suspect]
     Active Substance: AMBRISENTAN
     Indication: PRODUCT USED FOR UNKNOWN INDICATION
     Dosage: 5 MG, QD
     Route: 048
     Dates: start: 20130124, end: 20130215

REACTIONS (7)
  - Balance disorder [Unknown]
  - Dizziness [Unknown]
  - Headache [Unknown]
  - Confusional state [Unknown]
  - Dysuria [Unknown]
  - Fatigue [Unknown]
  - Asthenia [Unknown]
